FAERS Safety Report 24096897 (Version 1)
Quarter: 2024Q3

REPORT INFORMATION
  Report Type: Spontaneous
  Country: US (occurrence: US)
  Receive Date: 20240716
  Receipt Date: 20240716
  Transmission Date: 20241016
  Serious: No
  Sender: GRIFOLS
  Company Number: US-IGSA-BIG0026003

PATIENT
  Age: 59 Year
  Sex: Female
  Weight: 57.7 kg

DRUGS (4)
  1. GAMUNEX-C [Suspect]
     Active Substance: HUMAN IMMUNOGLOBULIN G
     Indication: Product used for unknown indication
     Dosage: 35 GRAM, UNKNOWN
     Route: 042
     Dates: start: 20230927
  2. GAMUNEX-C [Suspect]
     Active Substance: HUMAN IMMUNOGLOBULIN G
     Dosage: 35 GRAM, UNKNOWN
     Route: 042
     Dates: start: 20230929, end: 20230929
  3. GAMUNEX-C [Suspect]
     Active Substance: HUMAN IMMUNOGLOBULIN G
     Dosage: 35 GRAM, UNKNOWN
     Route: 042
     Dates: start: 20230929, end: 20230929
  4. FAMOTIDINE [Concomitant]
     Active Substance: FAMOTIDINE
     Dosage: UNK UNKNOWN, UNKNOWN
     Route: 065
     Dates: start: 20230929, end: 20230929

REACTIONS (6)
  - Serum sickness-like reaction [Recovered/Resolved]
  - Chest pain [Recovered/Resolved]
  - Eructation [Recovered/Resolved]
  - Gastrooesophageal reflux disease [Recovered/Resolved]
  - Throat irritation [Recovered/Resolved]
  - Chest discomfort [Recovered/Resolved]

NARRATIVE: CASE EVENT DATE: 20230929
